FAERS Safety Report 9189251 (Version 1)
Quarter: 2013Q1

REPORT INFORMATION
  Report Type: Spontaneous
  Country: US (occurrence: None)
  Receive Date: 20130321
  Receipt Date: 20130321
  Transmission Date: 20140127
  Serious: Yes (Other)
  Sender: FDA-Public Use
  Company Number: None

PATIENT
  Age: 39 Year
  Sex: Female
  Weight: 77.11 kg

DRUGS (7)
  1. METHIMAZOLE [Suspect]
     Indication: HYPERTHYROIDISM
     Route: 048
     Dates: start: 20130117, end: 20130225
  2. EFFEXOR XR [Concomitant]
  3. DOXYCYCLINE [Concomitant]
  4. PRASCION CLEANSOR [Concomitant]
  5. FINACIA GEL -AZELAIC ACID- [Concomitant]
  6. PROPANOLOL [Concomitant]
  7. SPIRONOLACTONE [Concomitant]

REACTIONS (9)
  - Tremor [None]
  - Urticaria [None]
  - Arthralgia [None]
  - Back pain [None]
  - Groin pain [None]
  - Abasia [None]
  - Musculoskeletal pain [None]
  - Arthralgia [None]
  - Hypersensitivity [None]
